FAERS Safety Report 9071757 (Version 1)
Quarter: 2013Q1

REPORT INFORMATION
  Report Type: Report from Study
  Country: US (occurrence: US)
  Receive Date: 20130129
  Receipt Date: 20130129
  Transmission Date: 20140127
  Serious: Yes (Hospitalization)
  Sender: FDA-Public Use
  Company Number: US-BRISTOL-MYERS SQUIBB COMPANY-17309188

PATIENT
  Age: 56 Year
  Sex: Male
  Weight: 97.6 kg

DRUGS (10)
  1. DASATINIB [Suspect]
     Indication: SQUAMOUS CELL CARCINOMA
  2. CETUXIMAB [Suspect]
     Indication: SQUAMOUS CELL CARCINOMA
  3. CISPLATIN [Suspect]
     Indication: SQUAMOUS CELL CARCINOMA
     Dates: start: 20130111
  4. AMLODIPINE [Concomitant]
  5. SIMVASTATIN [Concomitant]
  6. BENAZEPRIL HCL [Concomitant]
  7. ZOFRAN [Concomitant]
     Indication: NAUSEA
     Dosage: DOSAGE: QAM
  8. MINOCYCLINE [Concomitant]
  9. ATIVAN [Concomitant]
     Dosage: DOSAGE: QPM
  10. NYSTATIN [Concomitant]

REACTIONS (4)
  - Renal failure acute [Recovered/Resolved]
  - Electrocardiogram QT prolonged [Unknown]
  - Dehydration [Unknown]
  - Syncope [Unknown]
